FAERS Safety Report 8183559-0 (Version None)
Quarter: 2012Q1

REPORT INFORMATION
  Report Type: 
  Country: None (occurrence: None)
  Receive Date: 20120201
  Receipt Date: 20110328
  Transmission Date: 20120608
  Serious: Yes (Death, Hospitalization, Other)
  Sender: FDA-Public Use
  Company Number: 270097USA

PATIENT
  Age: 64 Year
  Sex: Female

DRUGS (8)
  1. VICODIN [Concomitant]
  2. CYTARABINE [Suspect]
     Indication: ACUTE MYELOID LEUKAEMIA
     Dates: start: 20100609
  3. VALACYCLOVIR HYDROCHLORIDE [Concomitant]
  4. DICYCLOMINE HCL [Concomitant]
  5. IDARUBICIN HCL [Suspect]
     Indication: ACUTE MYELOID LEUKAEMIA
     Dates: start: 20100609
  6. GABAPENTIN [Concomitant]
  7. CARBAMAZEPINE [Concomitant]
  8. EXJADE [Concomitant]

REACTIONS (4)
  - INFECTION [None]
  - DRUG INEFFECTIVE [None]
  - ACUTE LEUKAEMIA [None]
  - GENERAL PHYSICAL HEALTH DETERIORATION [None]
